FAERS Safety Report 9986806 (Version 3)
Quarter: 2014Q2

REPORT INFORMATION
  Report Type: Spontaneous
  Country: RU (occurrence: RU)
  Receive Date: 20140307
  Receipt Date: 20140425
  Transmission Date: 20141212
  Serious: Yes (Life-Threatening, Hospitalization)
  Sender: FDA-Public Use
  Company Number: RU-ELI_LILLY_AND_COMPANY-RU201403001300

PATIENT
  Age: 66 Year
  Sex: Female

DRUGS (5)
  1. HUMULIN 30% REGULAR, 70% NPH [Suspect]
     Indication: INSULIN-REQUIRING TYPE 2 DIABETES MELLITUS
     Dosage: 20 IU, EACH MORNING
     Route: 065
  2. HUMULIN 30% REGULAR, 70% NPH [Suspect]
     Dosage: 18 IU, EACH EVENING
     Route: 065
  3. HUMULIN 30% REGULAR, 70% NPH [Suspect]
     Dosage: 24 IU, BID
     Route: 065
  4. HUMULIN 30% REGULAR, 70% NPH [Suspect]
     Dosage: 18 IU, QD
     Route: 065
  5. FORMETIN [Concomitant]
     Dosage: 1 G, BID

REACTIONS (1)
  - Hyperglycaemia [Recovering/Resolving]
